FAERS Safety Report 4455511-X (Version None)
Quarter: 2004Q3

REPORT INFORMATION
  Report Type: 
  Country: None (occurrence: None)
  Receive Date: 20040917
  Receipt Date: 20040904
  Transmission Date: 20050211
  Serious: Yes (Other)
  Sender: FDA-Public Use
  Company Number: 2004045854

PATIENT
  Age: 69 Year
  Sex: Female
  Weight: 74.8435 kg

DRUGS (2)
  1. LIPITOR [Suspect]
     Indication: BLOOD CHOLESTEROL INCREASED
     Dosage: 5 MG (1 IN 1 D), ORAL
     Route: 048
     Dates: start: 20040601, end: 20040601
  2. HYDROCODONE (HYDROCODONE) [Concomitant]

REACTIONS (15)
  - ABDOMINAL PAIN UPPER [None]
  - ABDOMINAL RIGIDITY [None]
  - ASTHENIA [None]
  - BLOOD GLUCOSE INCREASED [None]
  - BLOOD PRESSURE DECREASED [None]
  - BLOOD SODIUM DECREASED [None]
  - EYE PAIN [None]
  - FATIGUE [None]
  - HEART RATE INCREASED [None]
  - KERATOCONJUNCTIVITIS SICCA [None]
  - MOBILITY DECREASED [None]
  - MYALGIA [None]
  - PAIN [None]
  - PYREXIA [None]
  - VISION BLURRED [None]
